FAERS Safety Report 6416532-0 (Version None)
Quarter: 2009Q4

REPORT INFORMATION
  Report Type: 
  Country: None (occurrence: None)
  Receive Date: 20091022
  Receipt Date: 20091007
  Transmission Date: 20100525
  Serious: Yes (Hospitalization)
  Sender: FDA-Public Use
  Company Number: DSA_41830_2009

PATIENT
  Age: 76 Year
  Sex: Male

DRUGS (6)
  1. ENALAPRIL MALEATE [Suspect]
     Indication: HYPERTENSION
     Dosage: (5 MG QD ORAL); FEW YEARS
     Route: 048
  2. ZETIA (ZETIA - EZETIMIBE ) (NOT SPECIFIED) [Suspect]
     Indication: HYPERLIPIDAEMIA
     Dosage: (10 MG QD ORAL)
     Route: 048
     Dates: start: 20070101
  3. ARANESP [Suspect]
     Indication: ANAEMIA
     Dosage: (60 ?G 1X/WEEK SUBCUTANEOUS)
     Route: 058
     Dates: start: 20061101
  4. OMEPRAZOLE [Suspect]
     Indication: DRUG USE FOR UNKNOWN INDICATION
     Dosage: (20 MG QD ORAL); FEW YEARS
     Route: 048
  5. PLAVIX                   CLOPIDOGREL BISULFATE) (NOT SPECIFIED) [Suspect]
     Indication: DRUG USE FOR UNKNOWN INDICATION
     Dosage: (75 MG QD ORAL)
     Route: 048
     Dates: start: 20070101
  6. PREVENCOR                 ( ATORVASTATIN CALCIUM ) (NOT SPECIFIED) [Suspect]
     Indication: HYPERLIPIDAEMIA
     Dosage: (20 MG QD ORAL)
     Route: 048
     Dates: start: 20070101

REACTIONS (2)
  - EOSINOPHILIA [None]
  - PULMONARY MASS [None]
